FAERS Safety Report 5614520-5 (Version None)
Quarter: 2008Q1

REPORT INFORMATION
  Report Type: 
  Country: None (occurrence: None)
  Receive Date: 20080205
  Receipt Date: 20071129
  Transmission Date: 20080703
  Serious: Yes (Hospitalization)
  Sender: FDA-Public Use
  Company Number: US-BOEHRINGER INGELHEIM GMBH, GERMANY-2006-BP-11507BP

PATIENT
  Sex: Male

DRUGS (41)
  1. MIRAPEX [Suspect]
     Indication: PARKINSON'S DISEASE
     Route: 048
     Dates: start: 19970811, end: 20050601
  2. SINEMET [Concomitant]
     Indication: PARKINSON'S DISEASE
  3. LEVODOPA/L.DOPA [Concomitant]
  4. REQUIP [Concomitant]
  5. AMANTADINE HCL [Concomitant]
     Dates: start: 19930101
  6. ELDEPRYL [Concomitant]
  7. SELEGILINE HCL [Concomitant]
  8. KEFLEX [Concomitant]
  9. MOTRIN [Concomitant]
  10. EFFEXOR [Concomitant]
     Dates: start: 19990101
  11. CELEXA [Concomitant]
  12. TRAZODONE HCL [Concomitant]
  13. TYLENOL [Concomitant]
     Dates: start: 20000301
  14. MAALOX [Concomitant]
  15. BENTYL [Concomitant]
     Dates: start: 20000301
  16. REMERON [Concomitant]
  17. FLEXERIL [Concomitant]
  18. NAPROXEN [Concomitant]
  19. WELLBUTRIN SR [Concomitant]
     Dates: start: 20010101
  20. ZOLOFT [Concomitant]
  21. SERZONE [Concomitant]
  22. VIAGRA [Concomitant]
     Dates: start: 20040101
  23. LEXAPRO [Concomitant]
  24. ZITHROMAX [Concomitant]
  25. FLONASE [Concomitant]
  26. ZITHROMAX [Concomitant]
  27. RYNATAN [Concomitant]
  28. PAXIL CR [Concomitant]
  29. COMTAN [Concomitant]
  30. ARTANE [Concomitant]
     Dates: start: 20060101
  31. ULTRAM [Concomitant]
  32. IBUPROFEN [Concomitant]
  33. CLARITIN [Concomitant]
  34. LEVAQUIN [Concomitant]
  35. TUSSI-12D [Concomitant]
  36. CARBIDOPA AND LEVODOPA [Concomitant]
     Dates: start: 20050101
  37. MYLANTA LIQUID [Concomitant]
     Dates: start: 20000301
  38. MULTIPLE VITAMIN [Concomitant]
     Dates: start: 20000301
  39. TYLENOL EX-STRENGTH [Concomitant]
     Dates: start: 20000301
  40. SYMADINE [Concomitant]
     Indication: BALANCE DISORDER
     Dates: start: 19990101
  41. SYMADINE [Concomitant]
     Indication: MUSCLE RIGIDITY

REACTIONS (7)
  - EMOTIONAL DISTRESS [None]
  - HYPERSEXUALITY [None]
  - INJURY [None]
  - MAJOR DEPRESSION [None]
  - OBSESSIVE-COMPULSIVE DISORDER [None]
  - PATHOLOGICAL GAMBLING [None]
  - SUICIDAL IDEATION [None]
